FAERS Safety Report 11177685 (Version 3)
Quarter: 2015Q3

REPORT INFORMATION
  Report Type: Spontaneous
  Country: US (occurrence: US)
  Receive Date: 20150610
  Receipt Date: 20150706
  Transmission Date: 20151125
  Serious: No
  Sender: FDA-Public Use
  Company Number: US-PFIZER INC-2015191060

PATIENT
  Age: 52 Year
  Sex: Female
  Weight: 66 kg

DRUGS (19)
  1. MORPHINE SULFATE. [Suspect]
     Active Substance: MORPHINE SULFATE
     Indication: BACK PAIN
     Dosage: 90 MG, DAILY
     Route: 048
     Dates: start: 201501, end: 201502
  2. CARISOPRODOL. [Concomitant]
     Active Substance: CARISOPRODOL
     Indication: PAIN
  3. AVINZA [Suspect]
     Active Substance: MORPHINE SULFATE
     Indication: PELVIC PAIN
  4. HYDROMORPHONE [Concomitant]
     Active Substance: HYDROMORPHONE
  5. SERTRALINE [Concomitant]
     Active Substance: SERTRALINE HYDROCHLORIDE
     Indication: DEPRESSION
     Dosage: 100 MG, DAILY
     Route: 048
     Dates: start: 2014
  6. AVINZA [Suspect]
     Active Substance: MORPHINE SULFATE
     Indication: BACK PAIN
     Dosage: 90 MG, DAILY
     Route: 048
     Dates: start: 2013, end: 20150602
  7. CARISOPRODOL. [Concomitant]
     Active Substance: CARISOPRODOL
     Indication: STRESS
     Dosage: 350 MG, 4X/DAY
     Route: 048
  8. VITAMIN C PLUS ROSE HIPS [Concomitant]
     Indication: SUPPLEMENTATION THERAPY
     Dosage: 500 MG, EVERY MORNING
     Route: 048
  9. METOPROLOL TARTRATE. [Concomitant]
     Active Substance: METOPROLOL TARTRATE
     Indication: HYPERTENSION
     Dosage: 100 MG, 2X/DAY
     Route: 048
  10. NEXIUM [Concomitant]
     Active Substance: ESOMEPRAZOLE MAGNESIUM
     Indication: GASTROOESOPHAGEAL REFLUX DISEASE
     Dosage: 40 MG, DAILY
     Route: 048
  11. TRAMADOL. [Concomitant]
     Active Substance: TRAMADOL
     Indication: BREAKTHROUGH PAIN
     Dosage: 200 MG, 2X/DAY (2 TABLETS 100 MG EVERY 12 HOURS)
     Route: 048
  12. VITAMIN D3 [Concomitant]
     Active Substance: CHOLECALCIFEROL
     Indication: VITAMIN SUPPLEMENTATION
     Dosage: 2000 IU^S, 2 TABLETS EVERY MORNING
     Route: 048
  13. THERACRAN [Concomitant]
     Indication: PROPHYLAXIS URINARY TRACT INFECTION
     Dosage: 72 MG, DAILY (2 TABLETS 36 MG DAILY)
     Route: 048
  14. THERACRAN [Concomitant]
     Indication: PROPHYLAXIS URINARY TRACT INFECTION
  15. LEVOTHYROXINE. [Concomitant]
     Active Substance: LEVOTHYROXINE
     Indication: HYPOTHYROIDISM
     Dosage: 0.1 MG, DAILY
     Route: 048
  16. AVINZA [Suspect]
     Active Substance: MORPHINE SULFATE
     Indication: SLEEP DISORDER
  17. MORPHINE SULFATE. [Suspect]
     Active Substance: MORPHINE SULFATE
     Indication: PELVIC PAIN
  18. CENTRUM FOR WOMEN [Concomitant]
     Indication: VITAMIN SUPPLEMENTATION
     Dosage: 1 TABLET, DAILY
     Route: 048
  19. DIAZEPAM. [Concomitant]
     Active Substance: DIAZEPAM
     Indication: ANXIETY
     Dosage: 5 MG, 3X/DAY
     Route: 048

REACTIONS (13)
  - Malaise [Recovered/Resolved]
  - Nausea [Recovered/Resolved]
  - Headache [Not Recovered/Not Resolved]
  - Condition aggravated [Recovering/Resolving]
  - Condition aggravated [Not Recovered/Not Resolved]
  - Drug ineffective [Unknown]
  - Condition aggravated [Recovering/Resolving]
  - Dyspepsia [Recovering/Resolving]
  - Pelvic pain [Not Recovered/Not Resolved]
  - Abdominal discomfort [Recovering/Resolving]
  - Back pain [Not Recovered/Not Resolved]
  - Condition aggravated [Not Recovered/Not Resolved]
  - Product use issue [Unknown]

NARRATIVE: CASE EVENT DATE: 201501
